FAERS Safety Report 8449805 (Version 5)
Quarter: 2013Q1

REPORT INFORMATION
  Report Type: Spontaneous
  Country: US (occurrence: US)
  Receive Date: 20120309
  Receipt Date: 20130222
  Transmission Date: 20140127
  Serious: No
  Sender: FDA-Public Use
  Company Number: US-PFIZER INC-2012060138

PATIENT
  Age: 66 Year
  Sex: Male
  Weight: 81.63 kg

DRUGS (10)
  1. SUTENT [Suspect]
     Indication: RENAL CANCER
     Dosage: 50 MG, DAILY, FOR 28 DAYS THEN 2 WEEKS OFF THEN SAME CYCLE CONTINUES
     Route: 048
     Dates: start: 201112
  2. SUTENT [Suspect]
     Indication: METASTASES TO PANCREAS
     Dosage: 50 MG, UNK
     Dates: start: 20130219
  3. SUTENT [Suspect]
     Indication: METASTASES TO LUNG
  4. SUTENT [Suspect]
     Indication: METASTATIC RENAL CELL CARCINOMA
  5. LISINOPRIL [Concomitant]
     Indication: BLOOD PRESSURE INCREASED
     Dosage: 40 MG, DAILY
  6. LISINOPRIL [Concomitant]
     Dosage: 10 MG, UNK
  7. METFORMIN [Concomitant]
     Indication: DIABETES MELLITUS
     Dosage: 500 MG, DAILY
     Dates: end: 201201
  8. METFORMIN [Concomitant]
     Dosage: 1 G, UNK
  9. ENSURE [Concomitant]
  10. IMODIUM A-D [Concomitant]

REACTIONS (8)
  - Hypertension [Recovered/Resolved]
  - Heart rate decreased [Unknown]
  - Blood pressure fluctuation [Unknown]
  - Fatigue [Unknown]
  - Vascular calcification [Unknown]
  - Red blood cell count decreased [Unknown]
  - Diarrhoea [Unknown]
  - Pruritus [Unknown]
